FAERS Safety Report 4622093-9 (Version None)
Quarter: 2005Q1

REPORT INFORMATION
  Report Type: 
  Country: None (occurrence: None)
  Receive Date: 20050328
  Receipt Date: 20050311
  Transmission Date: 20050727
  Serious: Yes (Hospitalization)
  Sender: FDA-Public Use
  Company Number: EM2005-0134

PATIENT
  Age: 37 Year
  Sex: Male

DRUGS (5)
  1. PROLEUKIN [Suspect]
     Indication: HIV INFECTION
     Dosage: SEE IMAGE
     Route: 058
     Dates: start: 20031117, end: 20031119
  2. PROLEUKIN [Suspect]
     Indication: HIV INFECTION
     Dosage: SEE IMAGE
     Route: 058
     Dates: start: 20031121, end: 20031123
  3. LAMIVUDINE [Concomitant]
  4. STAVUDINE [Concomitant]
  5. SAQUINAVIR (SAQUINAVIR) [Concomitant]

REACTIONS (10)
  - ABDOMINAL PAIN [None]
  - BLADDER NECK OBSTRUCTION [None]
  - HYPERTONIC BLADDER [None]
  - LOCAL SWELLING [None]
  - NAUSEA [None]
  - ORCHITIS [None]
  - SCROTAL PAIN [None]
  - SCROTAL SWELLING [None]
  - TESTICULAR PAIN [None]
  - VOMITING [None]
